FAERS Safety Report 11942311 (Version 1)
Quarter: 2016Q1

REPORT INFORMATION
  Report Type: Spontaneous
  Country: JP (occurrence: JP)
  Receive Date: 20160125
  Receipt Date: 20160125
  Transmission Date: 20160526
  Serious: Yes (Death, Other)
  Sender: FDA-Public Use
  Company Number: JP-ROCHE-1699172

PATIENT
  Age: 66 Year
  Sex: Male
  Weight: 63 kg

DRUGS (18)
  1. ALDACTONE A [Concomitant]
     Active Substance: SPIRONOLACTONE
     Indication: CONGESTIVE CARDIOMYOPATHY
     Route: 048
  2. URITOS [Concomitant]
     Active Substance: IMIDAFENACIN
     Indication: BENIGN PROSTATIC HYPERPLASIA
     Route: 048
  3. TARCEVA [Suspect]
     Active Substance: ERLOTINIB HYDROCHLORIDE
     Indication: LUNG ADENOCARCINOMA
     Route: 048
     Dates: start: 20140318, end: 20140327
  4. TERNELIN [Concomitant]
     Active Substance: TIZANIDINE
     Indication: LUNG ADENOCARCINOMA
     Route: 048
  5. XYZAL [Concomitant]
     Active Substance: LEVOCETIRIZINE DIHYDROCHLORIDE
     Indication: RHINITIS ALLERGIC
     Route: 048
  6. ARTIST [Concomitant]
     Active Substance: CARVEDILOL
     Indication: CONGESTIVE CARDIOMYOPATHY
     Route: 048
  7. METHYCOBAL [Concomitant]
     Active Substance: METHYLCOBALAMIN
     Indication: LUNG ADENOCARCINOMA
     Route: 048
     Dates: end: 20140401
  8. CALONAL [Concomitant]
     Active Substance: ACETAMINOPHEN
     Indication: LUNG ADENOCARCINOMA
     Route: 048
  9. TAKEPRON [Concomitant]
     Active Substance: LANSOPRAZOLE
     Indication: GASTRIC ULCER
     Route: 048
  10. HARNAL [Concomitant]
     Active Substance: TAMSULOSIN HYDROCHLORIDE
     Indication: BENIGN PROSTATIC HYPERPLASIA
     Route: 048
  11. LIVALO [Concomitant]
     Active Substance: PITAVASTATIN CALCIUM
     Indication: HYPERLIPIDAEMIA
     Route: 048
  12. DIART [Concomitant]
     Active Substance: AZOSEMIDE
     Indication: CONGESTIVE CARDIOMYOPATHY
     Route: 048
     Dates: end: 20140401
  13. MYONAL (JAPAN) [Concomitant]
     Active Substance: EPERISONE HYDROCHLORIDE
     Indication: LUNG ADENOCARCINOMA
     Route: 048
  14. PANVITAN [Concomitant]
     Indication: LUNG ADENOCARCINOMA
     Route: 048
  15. AVASTIN [Suspect]
     Active Substance: BEVACIZUMAB
     Indication: LUNG ADENOCARCINOMA
     Dosage: TREATMENT LINE: 2
     Route: 041
     Dates: start: 20140318, end: 20140318
  16. NICORANDIL [Concomitant]
     Active Substance: NICORANDIL
     Indication: CONGESTIVE CARDIOMYOPATHY
     Route: 048
  17. BAYASPIRIN [Concomitant]
     Active Substance: ASPIRIN
     Indication: CONGESTIVE CARDIOMYOPATHY
     Route: 048
  18. METGLUCO [Concomitant]
     Active Substance: METFORMIN HYDROCHLORIDE
     Indication: DIABETES MELLITUS
     Route: 048

REACTIONS (7)
  - Stomatitis [Not Recovered/Not Resolved]
  - Glossitis [Not Recovered/Not Resolved]
  - Decreased appetite [Unknown]
  - Malaise [Unknown]
  - Arrhythmia [Fatal]
  - Myocardial infarction [Unknown]
  - Renal impairment [Not Recovered/Not Resolved]

NARRATIVE: CASE EVENT DATE: 20140327
